FAERS Safety Report 9968077 (Version 1)
Quarter: 2014Q1

REPORT INFORMATION
  Report Type: Report from Study
  Country: US (occurrence: US)
  Receive Date: 20140306
  Receipt Date: 20140306
  Transmission Date: 20141002
  Serious: No
  Sender: FDA-Public Use
  Company Number: US-ABBVIE-13P-163-1142356-00

PATIENT
  Sex: Female

DRUGS (14)
  1. HUMIRA [Suspect]
     Indication: RHEUMATOID ARTHRITIS
  2. HUMIRA [Suspect]
     Dates: start: 201306
  3. VITAMIN D3 [Concomitant]
     Indication: SUPPLEMENTATION THERAPY
  4. CYMBALTA [Concomitant]
     Indication: ANXIETY
  5. CYMBALTA [Concomitant]
     Indication: DEPRESSION
  6. HYDROCODONE [Concomitant]
     Indication: ARTHRALGIA
     Dosage: 7.5/325 MG
  7. MOBIC [Concomitant]
     Indication: PRODUCT USED FOR UNKNOWN INDICATION
  8. FOLIC ACID [Concomitant]
     Indication: SUPPLEMENTATION THERAPY
  9. PREDNISONE [Concomitant]
     Indication: MUSCULOSKELETAL STIFFNESS
  10. XYZAL [Concomitant]
     Indication: HYPERSENSITIVITY
  11. ALPRAZOLAM [Concomitant]
     Indication: ANXIETY
  12. FIORICET [Concomitant]
     Indication: MIGRAINE
  13. MULTIVITAMIN [Concomitant]
     Indication: SUPPLEMENTATION THERAPY
  14. BIOTIN [Concomitant]
     Indication: SUPPLEMENTATION THERAPY
     Dosage: 2000 MG DAILY

REACTIONS (9)
  - Incorrect dose administered [Unknown]
  - Device malfunction [Unknown]
  - Dizziness [Recovered/Resolved]
  - Sinus congestion [Recovered/Resolved]
  - Sinusitis [Recovered/Resolved]
  - Headache [Recovered/Resolved]
  - Injection site haemorrhage [Recovered/Resolved]
  - Incorrect dose administered [Unknown]
  - Device malfunction [Unknown]
